FAERS Safety Report 23398877 (Version 1)
Quarter: 2024Q1

REPORT INFORMATION
  Report Type: Spontaneous
  Country: FR (occurrence: FR)
  Receive Date: 20240112
  Receipt Date: 20240112
  Transmission Date: 20240410
  Serious: Yes (Hospitalization, Other)
  Sender: FDA-Public Use
  Company Number: FR-ANIPHARMA-2024-FR-000010

PATIENT
  Age: 78 Year
  Sex: Female

DRUGS (4)
  1. CANDESARTAN CILEXETIL [Suspect]
     Active Substance: CANDESARTAN CILEXETIL
     Indication: Partial seizures
     Dosage: 8 MG DAILY
     Route: 048
  2. TEGRETOL [Suspect]
     Active Substance: CARBAMAZEPINE
     Dosage: 400 MG DAILY / 400 MG DAILY / 200 MG DAILY
     Route: 048
  3. KEPPRA [Suspect]
     Active Substance: LEVETIRACETAM
     Dosage: 1000 MG BID
     Route: 048
  4. CLOBAZAM [Concomitant]
     Active Substance: CLOBAZAM
     Route: 065

REACTIONS (2)
  - Hyponatraemia [Not Recovered/Not Resolved]
  - Sepsis [Unknown]

NARRATIVE: CASE EVENT DATE: 20231217
